FAERS Safety Report 13366583 (Version 1)
Quarter: 2017Q1

REPORT INFORMATION
  Report Type: Spontaneous
  Country: US (occurrence: US)
  Receive Date: 20170323
  Receipt Date: 20170323
  Transmission Date: 20170429
  Serious: Yes (Other)
  Sender: FDA-Public Use
  Company Number: US-ELI_LILLY_AND_COMPANY-US201608005183

PATIENT
  Sex: Male

DRUGS (8)
  1. LITHIUM CARBONATE. [Concomitant]
     Active Substance: LITHIUM CARBONATE
     Dosage: 450 MG, BID
     Route: 065
  2. CYMBALTA [Suspect]
     Active Substance: DULOXETINE HYDROCHLORIDE
     Dosage: 30 MG, EACH EVENING
     Route: 065
     Dates: start: 20140107
  3. CYMBALTA [Suspect]
     Active Substance: DULOXETINE HYDROCHLORIDE
     Dosage: 90 MBQ, QD
     Route: 065
     Dates: start: 20130820
  4. CYMBALTA [Suspect]
     Active Substance: DULOXETINE HYDROCHLORIDE
     Dosage: 60 MG, EACH MORNING
     Route: 065
     Dates: start: 20120822
  5. CYMBALTA [Suspect]
     Active Substance: DULOXETINE HYDROCHLORIDE
     Indication: PRODUCT USED FOR UNKNOWN INDICATION
     Dosage: 30 MG, EACH MORNING
     Route: 065
  6. CLONIDINE. [Concomitant]
     Active Substance: CLONIDINE
     Dosage: 0.1 MG, QID
     Route: 065
  7. CYMBALTA [Suspect]
     Active Substance: DULOXETINE HYDROCHLORIDE
     Dosage: 90 MG, EACH MORNING
     Route: 065
     Dates: start: 20140107
  8. XANAX [Concomitant]
     Active Substance: ALPRAZOLAM
     Dosage: 1 MG, TID
     Route: 065

REACTIONS (12)
  - Suicidal ideation [Unknown]
  - Seizure [Unknown]
  - Affect lability [Unknown]
  - Drug withdrawal syndrome [Unknown]
  - Tremor [Unknown]
  - Dizziness [Unknown]
  - Paraesthesia [Unknown]
  - Nausea [Unknown]
  - Insomnia [Unknown]
  - Agitation [Unknown]
  - Vertigo [Unknown]
  - Anxiety [Unknown]
